FAERS Safety Report 8352223-7 (Version None)
Quarter: 2012Q2

REPORT INFORMATION
  Report Type: 
  Country: None (occurrence: None)
  Receive Date: 20120511
  Receipt Date: 20120504
  Transmission Date: 20120825
  Serious: Yes (Other)
  Sender: FDA-Public Use
  Company Number: US-CELGENEUS-163-21880-12050716

PATIENT
  Sex: Male
  Weight: 99.88 kg

DRUGS (13)
  1. ACIDOPHILUS [Concomitant]
     Route: 048
  2. VICODIN [Concomitant]
     Route: 065
  3. ASPIRIN [Concomitant]
     Dosage: 81 MILLIGRAM
     Route: 065
  4. BENZACLIN [Concomitant]
     Route: 065
  5. METOPROLOL TARTRATE [Concomitant]
     Route: 065
  6. LYRICA [Concomitant]
     Route: 065
  7. CLINDAMYCIN [Concomitant]
     Route: 065
  8. DOXYCYCLINE [Concomitant]
     Route: 065
  9. BUDESONIDE [Concomitant]
     Route: 065
  10. REVLIMID [Suspect]
     Indication: MULTIPLE MYELOMA
     Dosage: 10 MILLIGRAM
     Route: 048
     Dates: start: 20100201
  11. PENTASA [Concomitant]
     Route: 065
  12. IBUPROFEN [Concomitant]
     Route: 065
  13. LOMOTIL [Concomitant]
     Route: 065

REACTIONS (1)
  - COLITIS ULCERATIVE [None]
